FAERS Safety Report 9322494 (Version 2)
Quarter: 2013Q2

REPORT INFORMATION
  Report Type: Spontaneous
  Country: US (occurrence: US)
  Receive Date: 20130531
  Receipt Date: 20130626
  Transmission Date: 20140414
  Serious: Yes (Other)
  Sender: FDA-Public Use
  Company Number: PHHY2013US053426

PATIENT
  Age: 80 Year
  Sex: Male

DRUGS (5)
  1. OLANZAPINE [Suspect]
     Indication: BIPOLAR DISORDER
  2. ASPIRIN [Concomitant]
  3. INSULIN [Concomitant]
  4. AMLODIPINE [Concomitant]
  5. BROAD SPECTRUM ANTIBIOTICS [Concomitant]
     Indication: SEPSIS

REACTIONS (6)
  - Mental status changes [Unknown]
  - Disorientation [Unknown]
  - Heart rate decreased [Unknown]
  - Hypothermia [Recovered/Resolved]
  - Respiratory distress [Unknown]
  - Dyspnoea [Unknown]
